FAERS Safety Report 8095253-5 (Version None)
Quarter: 2012Q1

REPORT INFORMATION
  Report Type: 
  Country: None (occurrence: None)
  Receive Date: 20120129
  Receipt Date: 20111229
  Transmission Date: 20120608
  Serious: No
  Sender: FDA-Public Use
  Company Number: US-ABBOTT-11P-163-0887795-00

PATIENT
  Age: 64 Year
  Sex: Female

DRUGS (15)
  1. METOPROLOL TARTRATE [Concomitant]
     Indication: HEART RATE IRREGULAR
     Route: 048
  2. LANTUS [Concomitant]
     Indication: DIABETES MELLITUS
     Dosage: DAILY
  3. METHOTREXATE [Concomitant]
     Indication: INFLAMMATION
  4. VITAMIN B-12 [Concomitant]
     Indication: RHEUMATOID ARTHRITIS
     Route: 050
  5. SIMVASTATIN [Concomitant]
     Indication: BLOOD CHOLESTEROL INCREASED
     Dosage: DAILY
     Route: 048
  6. MULTIPLE VITAMINS [Concomitant]
     Indication: VITAMIN SUPPLEMENTATION
     Dosage: DAILY
     Route: 048
  7. METFORMIN HCL [Concomitant]
     Indication: DIABETES MELLITUS
     Dosage: DAILY
     Route: 048
  8. GABAPENTIN [Concomitant]
     Indication: PAIN
     Route: 048
  9. GLUCOPHAGE [Concomitant]
     Indication: DIABETES MELLITUS
     Dosage: DAILY
     Route: 048
  10. FOLIC ACID [Concomitant]
     Indication: VITAMIN SUPPLEMENTATION
     Dosage: DAILY
     Route: 048
  11. NORTRIPTYLINE HCL [Concomitant]
     Indication: PAIN
  12. NITROFURANTOIN [Concomitant]
     Indication: URINARY TRACT INFECTION
     Route: 048
  13. HUMIRA [Suspect]
     Indication: RHEUMATOID ARTHRITIS
     Dates: start: 20111201
  14. LISINOPRIL [Concomitant]
     Indication: HEART RATE IRREGULAR
     Dosage: DAILY
     Route: 048
  15. CELEXA [Concomitant]
     Indication: DEPRESSION
     Route: 048

REACTIONS (1)
  - INJECTION SITE PAIN [None]
